FAERS Safety Report 4313811-8 (Version None)
Quarter: 2004Q1

REPORT INFORMATION
  Report Type: 
  Country: None (occurrence: None)
  Receive Date: 20040304
  Receipt Date: 20031208
  Transmission Date: 20041129
  Serious: Yes (Other)
  Sender: FDA-Public Use
  Company Number: 2003122988

PATIENT
  Age: 15 Year
  Sex: Male

DRUGS (2)
  1. GEODON [Suspect]
     Indication: BIPOLAR DISORDER
     Dosage: 80 MG (BID), ORAL
     Route: 048
     Dates: start: 20010101
  2. VALPROATE SODIUM [Concomitant]

REACTIONS (2)
  - DYSTONIA [None]
  - OCULOGYRATION [None]
